FAERS Safety Report 6045211-7 (Version None)
Quarter: 2009Q1

REPORT INFORMATION
  Report Type: 
  Country: None (occurrence: None)
  Receive Date: 20090121
  Receipt Date: 20090109
  Transmission Date: 20090719
  Serious: Yes (Other)
  Sender: FDA-Public Use
  Company Number: US-ROCHE-607371

PATIENT
  Sex: Male

DRUGS (2)
  1. PEG-INTERFERON A-2A (RO 25-8310) [Suspect]
     Indication: HEPATITIS C
     Dosage: FORM: PFS
     Route: 065
     Dates: start: 20080813
  2. RIBAVIRIN [Suspect]
     Indication: HEPATITIS C
     Route: 065
     Dates: start: 20080813

REACTIONS (7)
  - COUGH [None]
  - EYE HAEMORRHAGE [None]
  - HEADACHE [None]
  - MYODESOPSIA [None]
  - PAIN [None]
  - RETINAL EXUDATES [None]
  - SNEEZING [None]
